FAERS Safety Report 7053475-6 (Version None)
Quarter: 2010Q4

REPORT INFORMATION
  Report Type: 
  Country: None (occurrence: None)
  Receive Date: 20101020
  Receipt Date: 20101014
  Transmission Date: 20110411
  Serious: Yes (Other)
  Sender: FDA-Public Use
  Company Number: US-PFIZER INC-2010103609

PATIENT
  Sex: Male
  Weight: 118 kg

DRUGS (2)
  1. CHANTIX [Suspect]
     Indication: SMOKING CESSATION THERAPY
     Dosage: UNK
     Route: 048
     Dates: start: 20100623, end: 20100714
  2. CHANTIX [Suspect]
     Indication: TOBACCO ABUSE

REACTIONS (1)
  - URTICARIA [None]
